APPROVED DRUG PRODUCT: TYMTRAN
Active Ingredient: CERULETIDE DIETHYLAMINE
Strength: 0.02MG/ML
Dosage Form/Route: INJECTABLE;INJECTION
Application: N018296 | Product #001
Applicant: PHARMACIA AND UPJOHN CO
Approved: Approved Prior to Jan 1, 1982 | RLD: No | RS: No | Type: DISCN